FAERS Safety Report 4848255-3 (Version None)
Quarter: 2005Q4

REPORT INFORMATION
  Report Type: 
  Country: None (occurrence: None)
  Receive Date: 20051207
  Receipt Date: 20051207
  Transmission Date: 20060501
  Serious: Yes (Disabling)
  Sender: FDA-Public Use
  Company Number: None

PATIENT
  Sex: Female
  Weight: 53.978 kg

DRUGS (1)
  1. KENALOG-40 [Suspect]
     Indication: BURSITIS
     Dosage: 0.3 ML ONCE ONLY SQ
     Route: 057
     Dates: start: 20040714

REACTIONS (4)
  - DISEASE PROGRESSION [None]
  - FAT ATROPHY [None]
  - PALLOR [None]
  - SKIN ATROPHY [None]
